FAERS Safety Report 11646690 (Version 1)
Quarter: 2015Q4

REPORT INFORMATION
  Report Type: Spontaneous
  Country: US (occurrence: US)
  Receive Date: 20151020
  Receipt Date: 20151020
  Transmission Date: 20160304
  Serious: No
  Sender: FDA-Public Use
  Company Number: US-ROCHE-ITM201504IM013115

PATIENT
  Sex: Male
  Weight: 79.45 kg

DRUGS (4)
  1. ESBRIET [Suspect]
     Active Substance: PIRFENIDONE
     Dosage: 3 CAPSULE THREE TIMES IN A DAY
     Route: 048
     Dates: start: 20150314
  2. ASPIRIN. [Concomitant]
     Active Substance: ASPIRIN
  3. ESBRIET [Suspect]
     Active Substance: PIRFENIDONE
     Indication: IDIOPATHIC PULMONARY FIBROSIS
     Dosage: THREE CAPSULE THREE TIMES IN A DAY
     Route: 048
     Dates: start: 20150312
  4. ESBRIET [Suspect]
     Active Substance: PIRFENIDONE
     Dosage: 1869 MG (2 CAPSULES IN MORNING, 2 CAPSULES IN AFTERNOON AND 3 CAPSULES AT NIGHT)
     Route: 048

REACTIONS (7)
  - Malaise [Unknown]
  - Nausea [Unknown]
  - Pruritus [Unknown]
  - Rash [Unknown]
  - Tinea infection [Unknown]
  - Decreased appetite [Unknown]
  - Diarrhoea [Unknown]
